FAERS Safety Report 16461545 (Version 5)
Quarter: 2022Q4

REPORT INFORMATION
  Report Type: Report from Study
  Country: GB (occurrence: GB)
  Receive Date: 20190621
  Receipt Date: 20221031
  Transmission Date: 20230113
  Serious: Yes (Other)
  Sender: FDA-Public Use
  Company Number: GB-CELLTRION INC.-2019GB020083

PATIENT

DRUGS (17)
  1. TRASTUZUMAB [Suspect]
     Active Substance: TRASTUZUMAB
     Indication: HER2 positive breast cancer
     Dosage: 357 MG EVERY 3 WEEKS, DOSE MODIFIED
     Route: 042
     Dates: start: 20161207, end: 20170301
  2. TRASTUZUMAB [Suspect]
     Active Substance: TRASTUZUMAB
     Dosage: 336 MG EVERY 3 WEEKS, MODIFIED DUE TO WEIGHT LOSS
     Route: 042
     Dates: start: 20170301, end: 20170301
  3. TRASTUZUMAB [Suspect]
     Active Substance: TRASTUZUMAB
     Dosage: 315 MG EVERY 3 WEEK, MODIFIED DUE TO WEIGHT INCREASE
     Route: 042
     Dates: start: 20170322
  4. TRASTUZUMAB [Suspect]
     Active Substance: TRASTUZUMAB
     Dosage: 483 MG, LOADING DOSE, 1 CYCLE PER REGIMEN, DOSE MODIFIED
     Route: 042
     Dates: start: 20161115, end: 20161115
  5. DOCETAXEL [Suspect]
     Active Substance: DOCETAXEL
     Indication: HER2 positive breast cancer
     Dosage: 96 MG EVERY 3 WEEK 6 CYCLES PER REGIMEN. DRUG DISCONTINUED AS PLANNED NUMBER OF CYCLES COMPLETED
     Route: 042
     Dates: start: 20161116, end: 20170301
  6. PERTUZUMAB [Suspect]
     Active Substance: PERTUZUMAB
     Indication: HER2 positive breast cancer
     Dosage: 840 MG EVERY 3 WEEK LOADING DOSE, DOSE MODIFIED
     Route: 042
     Dates: start: 20161115, end: 20161115
  7. PERTUZUMAB [Suspect]
     Active Substance: PERTUZUMAB
     Dosage: 420 MG EVERY 3 WEEKS 18 CYCLES PER REGIMEN
     Route: 042
     Dates: start: 20161207
  8. ADCAL [CALCIUM CARBONATE;CALCIUM GLUCONATE;CALCIUM LACTATE;ERGOCALCIFE [Concomitant]
     Dosage: 1.5 G EVERY 0.5 DAY
     Dates: start: 20130613
  9. CHLORPHENIRAMINE MALEATE [Concomitant]
     Active Substance: CHLORPHENIRAMINE MALEATE
     Dosage: 10 MILLIGRAM, PRIOR TO CHEMOTHERAPY TREATMENT
     Dates: start: 20161207
  10. DEXAMETHASONE [Concomitant]
     Active Substance: DEXAMETHASONE
     Dosage: 8 MG EVERY 0.5 DAY, TO BE TAKEN AT EACH CHEMOTHERAPY CYCLE DAY BEFORE TREATMENT, DAY OF TREATMENT AN
     Route: 048
     Dates: start: 20161229
  11. FILGRASTIM [Concomitant]
     Active Substance: FILGRASTIM
     Dosage: 300 UG, FOR 7 DAYS 24 HOURS POST CHEMOTHERAPY
     Dates: start: 20161231
  12. HYDROCORTISONE [Concomitant]
     Active Substance: HYDROCORTISONE
     Dosage: 100 MILLIGRAM, PRIOR TO CHEMOTHERAPY TREATMENT
     Dates: start: 20161207
  13. LETROZOLE [Concomitant]
     Active Substance: LETROZOLE
     Dosage: 2.5 MILLIGRAM, DAILY
     Dates: start: 20130612
  14. LOPERAMIDE [Concomitant]
     Active Substance: LOPERAMIDE
     Indication: Adverse event
     Dosage: 2 MG
     Dates: start: 20161207
  15. METOCLOPRAMIDE [Concomitant]
     Active Substance: METOCLOPRAMIDE
     Dosage: 10 MG 0.33/DAY
     Dates: start: 20161207
  16. OMEPRAZOLE [Concomitant]
     Active Substance: OMEPRAZOLE
     Dosage: 20 MG, DAILY
     Dates: start: 20161207
  17. ONDANSETRON [Concomitant]
     Active Substance: ONDANSETRON
     Dosage: 8 MG, PRIOR TO CHEMOTHERAPY
     Dates: start: 20161207

REACTIONS (5)
  - Syncope [Recovered/Resolved]
  - Cerebral small vessel ischaemic disease [Not Recovered/Not Resolved]
  - Amnesia [Unknown]
  - Pruritus [Recovered/Resolved]
  - Swelling [Recovered/Resolved]

NARRATIVE: CASE EVENT DATE: 20190117
